FAERS Safety Report 7909799-0 (Version None)
Quarter: 2011Q4

REPORT INFORMATION
  Report Type: 
  Country: None (occurrence: None)
  Receive Date: 20111111
  Receipt Date: 20111031
  Transmission Date: 20120403
  Serious: No
  Sender: FDA-Public Use
  Company Number: JP-NAPPMUNDI-MAG-2011-0001771

PATIENT
  Age: 79 Year
  Sex: Female

DRUGS (2)
  1. BUPRENORPHINE [Suspect]
     Indication: BACK PAIN
     Dosage: 5 MCG, Q1H
     Route: 062
     Dates: start: 20111014, end: 20111021
  2. BUPRENORPHINE [Suspect]
     Dosage: 10 MCG, Q1H
     Route: 062
     Dates: start: 20111021

REACTIONS (2)
  - ECZEMA [None]
  - PRURITUS GENERALISED [None]
